FAERS Safety Report 7513408-2 (Version None)
Quarter: 2011Q2

REPORT INFORMATION
  Report Type: 
  Country: None (occurrence: None)
  Receive Date: 20110526
  Receipt Date: 20110526
  Transmission Date: 20111010
  Serious: No
  Sender: FDA-Public Use
  Company Number: None

PATIENT
  Age: 64 Year
  Sex: Female
  Weight: 80.2867 kg

DRUGS (1)
  1. METFORMIN HCL [Suspect]
     Dosage: 500 MG ONCE DAILY
     Dates: start: 20110201, end: 20110501

REACTIONS (6)
  - RASH [None]
  - DIARRHOEA [None]
  - DYSGEUSIA [None]
  - PRURITUS [None]
  - ABDOMINAL PAIN UPPER [None]
  - ALOPECIA [None]
